FAERS Safety Report 8126607 (Version 4)
Quarter: 2013Q1

REPORT INFORMATION
  Report Type: Spontaneous
  Country: US (occurrence: US)
  Receive Date: 20110908
  Receipt Date: 20130214
  Transmission Date: 20140127
  Serious: Yes (Hospitalization)
  Sender: FDA-Public Use
  Company Number: US-GLAXOSMITHKLINE-A0897010A

PATIENT
  Age: 59 Year
  Sex: Female
  Weight: 74.5 kg

DRUGS (4)
  1. AVANDIA [Suspect]
     Indication: TYPE 2 DIABETES MELLITUS
     Dosage: 4MG PER DAY
     Route: 048
     Dates: start: 20010616, end: 20030608
  2. PREVACID [Concomitant]
  3. SYNTHROID [Concomitant]
  4. WELLBUTRIN SR [Concomitant]

REACTIONS (8)
  - Myocardial infarction [Recovering/Resolving]
  - Ventricular fibrillation [Unknown]
  - Atrial fibrillation [Unknown]
  - Respiratory failure [Unknown]
  - Cardiac arrest [Unknown]
  - Cardiac failure congestive [Unknown]
  - Coronary artery bypass [Unknown]
  - Cardiovascular disorder [Unknown]
